FAERS Safety Report 5850453-7 (Version None)
Quarter: 2008Q3

REPORT INFORMATION
  Report Type: 
  Country: None (occurrence: None)
  Receive Date: 20080819
  Receipt Date: 20080808
  Transmission Date: 20090109
  Serious: Yes (Other)
  Sender: FDA-Public Use
  Company Number: CZ-PFIZER INC-2008057055

PATIENT
  Sex: Male
  Weight: 91 kg

DRUGS (4)
  1. HUMATROPE [Suspect]
     Indication: HYPOPITUITARISM
     Route: 058
  2. DESMOPRESSIN ACETATE [Concomitant]
     Route: 045
  3. EUTHYROX [Concomitant]
     Route: 048
  4. UNDESTOR [Concomitant]
     Route: 048

REACTIONS (2)
  - CRANIOPHARYNGIOMA [None]
  - NEOPLASM RECURRENCE [None]
